FAERS Safety Report 9501915 (Version 1)
Quarter: 2013Q3

REPORT INFORMATION
  Report Type: Spontaneous
  Country: US (occurrence: US)
  Receive Date: 20130905
  Receipt Date: 20130905
  Transmission Date: 20140515
  Serious: No
  Sender: FDA-Public Use
  Company Number: US-ASTRAZENECA-2013SE49663

PATIENT
  Age: 79 Year
  Sex: Male
  Weight: 81.6 kg

DRUGS (3)
  1. SYMBICORT [Suspect]
     Indication: CHRONIC OBSTRUCTIVE PULMONARY DISEASE
     Dosage: 160-4.5, TWO INHALATIONS TWICE A DAY
     Route: 055
  2. SYMBICORT [Suspect]
     Indication: ASTHMA
     Dosage: 160-4.5, TWO INHALATIONS TWICE A DAY
     Route: 055
  3. VENTOLIN [Concomitant]
     Indication: ASTHMA

REACTIONS (1)
  - Increased upper airway secretion [Recovered/Resolved]
